FAERS Safety Report 5773963-X (Version None)
Quarter: 2008Q2

REPORT INFORMATION
  Report Type: 
  Country: None (occurrence: None)
  Receive Date: 20080601
  Receipt Date: 20080320
  Transmission Date: 20081010
  Serious: No
  Sender: FDA-Public Use
  Company Number: US200803005230

PATIENT
  Age: 70 Year
  Sex: Female
  Weight: 117.9 kg

DRUGS (9)
  1. BYETTA [Suspect]
     Indication: TYPE 2 DIABETES MELLITUS
     Dosage: 5 UG, 2/D, SUBCUTANEOUS ; 10 UG, 2/D, SUBCUTANEOUS
     Route: 058
     Dates: start: 20080201, end: 20080301
  2. BYETTA [Suspect]
     Indication: TYPE 2 DIABETES MELLITUS
     Dosage: 5 UG, 2/D, SUBCUTANEOUS ; 10 UG, 2/D, SUBCUTANEOUS
     Route: 058
     Dates: start: 20080310, end: 20080319
  3. METFORMIN HCL [Concomitant]
  4. INSULIN (INSULIN) [Concomitant]
  5. PLAVIX [Concomitant]
  6. ASPIRIN /USA/ (ACETYLSALICYLIC ACID) [Concomitant]
  7. METOPROLOL TARTRATE [Concomitant]
  8. DIOVAN (HYDROCHLOROTHIAZIDE, VALSARTAN) [Concomitant]
  9. AMLODIPINE [Concomitant]

REACTIONS (8)
  - DRY MOUTH [None]
  - DYSGEUSIA [None]
  - EARLY SATIETY [None]
  - GASTROOESOPHAGEAL REFLUX DISEASE [None]
  - NAUSEA [None]
  - STOMACH DISCOMFORT [None]
  - STOMATITIS [None]
  - WEIGHT DECREASED [None]
